FAERS Safety Report 6038223-0 (Version None)
Quarter: 2009Q1

REPORT INFORMATION
  Report Type: 
  Country: None (occurrence: None)
  Receive Date: 20090115
  Receipt Date: 20090105
  Transmission Date: 20090719
  Serious: Yes (Other)
  Sender: FDA-Public Use
  Company Number: GB-ASTRAZENECA-2009AC00122

PATIENT
  Age: 67 Year
  Sex: Male
  Weight: 76 kg

DRUGS (24)
  1. PROPOFOL [Suspect]
     Indication: ANAESTHESIA
     Dosage: INITIAL DOSE 0.8MG/KG/HR (60MG/HR)
     Route: 042
  2. PROPOFOL [Suspect]
     Indication: MECHANICAL VENTILATION
     Dosage: INITIAL DOSE 0.8MG/KG/HR (60MG/HR)
     Route: 042
  3. PROPOFOL [Suspect]
     Dosage: DURING CARDIOPULMONARY BYPASS 5.2MG/KG/HR (400MG/HR)
     Route: 042
  4. PROPOFOL [Suspect]
     Dosage: DURING CARDIOPULMONARY BYPASS 5.2MG/KG/HR (400MG/HR)
     Route: 042
  5. PROPOFOL [Suspect]
     Dosage: RESTARTED AT 0.9MG/KG/HR
     Route: 042
  6. PROPOFOL [Suspect]
     Dosage: RESTARTED AT 0.9MG/KG/HR
     Route: 042
  7. PROPOFOL [Suspect]
     Dosage: 0.5MG/KG/HR
     Route: 042
  8. PROPOFOL [Suspect]
     Dosage: 0.5MG/KG/HR
     Route: 042
  9. DIGOXIN [Concomitant]
     Indication: ATRIAL FIBRILLATION
  10. PREDNISOLONE [Concomitant]
     Indication: ASTHMA
  11. VERAPAMIL [Concomitant]
  12. BISOPROLOL [Concomitant]
  13. RAMIPRIL [Concomitant]
  14. ANTI-PLATELET AGENTS [Concomitant]
  15. NITRATES [Concomitant]
  16. MIDAZOLAM HCL [Concomitant]
     Indication: ANAESTHESIA
  17. FENTANYL [Concomitant]
     Indication: ANAESTHESIA
  18. THIOPENTAL SODIUM [Concomitant]
     Indication: ANAESTHESIA
  19. VECURONIUM BROMIDE [Concomitant]
     Indication: ANAESTHESIA
  20. ISOFLURANE [Concomitant]
     Indication: ANAESTHESIA
     Route: 042
  21. HARTMANNS SOLUTION [Concomitant]
     Indication: VASCULAR GRAFT
  22. EPINEPHRINE [Concomitant]
     Dosage: 0.06MCG/KG/HR
  23. HUMAN ACTRAPID [Concomitant]
     Indication: BLOOD GLUCOSE
  24. MORPHINE [Concomitant]

REACTIONS (2)
  - LACTIC ACIDOSIS [None]
  - PROPOFOL INFUSION SYNDROME [None]
